FAERS Safety Report 12424619 (Version 2)
Quarter: 2017Q2

REPORT INFORMATION
  Report Type: Spontaneous
  Country: US (occurrence: US)
  Receive Date: 20160601
  Receipt Date: 20170606
  Transmission Date: 20170830
  Serious: No
  Sender: FDA-Public Use
  Company Number: US-NOVEN PHARMACEUTICALS, INC.-US2015001212

PATIENT

DRUGS (9)
  1. KEPPRA [Concomitant]
     Active Substance: LEVETIRACETAM
     Indication: SEIZURE
  2. ZOLOFT [Concomitant]
     Active Substance: SERTRALINE HYDROCHLORIDE
  3. CLONIDINE. [Concomitant]
     Active Substance: CLONIDINE
  4. ZOFRAN [Concomitant]
     Active Substance: ONDANSETRON HYDROCHLORIDE
  5. CLOMIPRAMINE [Concomitant]
     Active Substance: CLOMIPRAMINE
  6. DAYTRANA [Suspect]
     Active Substance: METHYLPHENIDATE
     Indication: ATTENTION DEFICIT/HYPERACTIVITY DISORDER
     Dosage: USING ONE, 10 MG AND ONE 20 MG PATCH, UNKNOWN
     Route: 062
     Dates: start: 20151108
  7. ZYPREXA [Concomitant]
     Active Substance: OLANZAPINE
  8. LIBRAX [Concomitant]
     Active Substance: CHLORDIAZEPOXIDE HYDROCHLORIDE\CLIDINIUM BROMIDE
     Indication: ABDOMINAL DISCOMFORT
  9. DAYTRANA [Suspect]
     Active Substance: METHYLPHENIDATE
     Indication: DEPRESSION
     Dosage: 30 MG, UNKNOWN
     Route: 062
     Dates: start: 2015, end: 20151107

REACTIONS (7)
  - Off label use [Unknown]
  - Malaise [Not Recovered/Not Resolved]
  - Therapeutic response unexpected [Unknown]
  - Product quality issue [Unknown]
  - Drug administered at inappropriate site [Unknown]
  - Wrong technique in product usage process [Not Recovered/Not Resolved]
  - Drug prescribing error [Unknown]

NARRATIVE: CASE EVENT DATE: 2015
